FAERS Safety Report 8557101-6 (Version None)
Quarter: 2012Q3

REPORT INFORMATION
  Report Type: 
  Country: None (occurrence: None)
  Receive Date: 20120720
  Receipt Date: 20120709
  Transmission Date: 20120928
  Serious: Yes (Hospitalization)
  Sender: FDA-Public Use
  Company Number: 2012P1048825

PATIENT
  Age: 89 Year
  Sex: Female

DRUGS (8)
  1. FUROSEMIDE [Concomitant]
  2. DILTIAZEM HYDROCHLORIDE [Suspect]
     Dates: start: 20110511, end: 20120307
  3. RAMIPRIL [Concomitant]
  4. DIGOXIN [Suspect]
     Dosage: 1 DOSE; QD; PO
     Route: 048
     Dates: start: 20110318, end: 20120307
  5. INT/LONG-ACTING INSULIN [Concomitant]
  6. REPAGLINIDE [Concomitant]
  7. WARFARIN SODIUM [Concomitant]
  8. ALLOPURINOL [Concomitant]

REACTIONS (5)
  - ASTHENIA [None]
  - ABDOMINAL PAIN [None]
  - DYSPNOEA [None]
  - OEDEMA PERIPHERAL [None]
  - BRADYARRHYTHMIA [None]
